FAERS Safety Report 7294743-2 (Version None)
Quarter: 2011Q1

REPORT INFORMATION
  Report Type: 
  Country: None (occurrence: None)
  Receive Date: 20110216
  Receipt Date: 20110204
  Transmission Date: 20110831
  Serious: No
  Sender: FDA-Public Use
  Company Number: CA-JNJFOC-20110201830

PATIENT
  Sex: Male

DRUGS (5)
  1. STELARA [Suspect]
     Indication: PSORIASIS
     Route: 058
     Dates: start: 20100806, end: 20101126
  2. RAMIPRIL [Concomitant]
  3. EZETROL [Concomitant]
  4. CRESTOR [Concomitant]
  5. GLYBURIDE [Concomitant]

REACTIONS (3)
  - PSORIASIS [None]
  - HYPERSENSITIVITY [None]
  - OEDEMA PERIPHERAL [None]
